FAERS Safety Report 13711379 (Version 1)
Quarter: 2017Q3

REPORT INFORMATION
  Report Type: Spontaneous
  Country: CA (occurrence: CA)
  Receive Date: 20170703
  Receipt Date: 20170703
  Transmission Date: 20171127
  Serious: Yes (Hospitalization, Other)
  Sender: FDA-Public Use
  Company Number: CA-MYLANLABS-2017M1038449

PATIENT

DRUGS (2)
  1. CLARUS [Suspect]
     Active Substance: ISOTRETINOIN
     Indication: ACNE
     Dosage: 40 MG, UNK
  2. ACCUTANE [Suspect]
     Active Substance: ISOTRETINOIN
     Indication: ACNE
     Dosage: UNK
     Route: 048

REACTIONS (6)
  - Abdominal abscess [Unknown]
  - Crohn^s disease [Unknown]
  - Chest pain [Unknown]
  - Epistaxis [Unknown]
  - Acne [Unknown]
  - Blood creatinine decreased [Unknown]
